FAERS Safety Report 7859630-7 (Version None)
Quarter: 2011Q4

REPORT INFORMATION
  Report Type: 
  Country: None (occurrence: None)
  Receive Date: 20111027
  Receipt Date: 20111019
  Transmission Date: 20120403
  Serious: No
  Sender: FDA-Public Use
  Company Number: US-BAYER-2011-102745

PATIENT
  Age: 33 Year
  Sex: Female

DRUGS (1)
  1. NATAZIA [Suspect]
     Indication: CONTRACEPTION
     Dosage: UNK
     Route: 048
     Dates: start: 20110401

REACTIONS (1)
  - PREGNANCY [None]
